FAERS Safety Report 4608837-0 (Version None)
Quarter: 2005Q1

REPORT INFORMATION
  Report Type: 
  Country: None (occurrence: None)
  Receive Date: 20050315
  Receipt Date: 20040308
  Transmission Date: 20050727
  Serious: Yes (Hospitalization)
  Sender: FDA-Public Use
  Company Number: JP-GLAXOSMITHKLINE-B0372033A

PATIENT
  Age: 64 Year
  Sex: Male

DRUGS (3)
  1. SEREVENT [Suspect]
     Indication: ASTHMA
     Dosage: 50MCG TWICE PER DAY
     Route: 055
     Dates: start: 20050111, end: 20050210
  2. FLUTICASONE PROPIONATE [Suspect]
     Indication: ASTHMA
     Dosage: 200MCG TWICE PER DAY
     Route: 055
     Dates: start: 20050111, end: 20050210
  3. MUCODYNE [Concomitant]
     Indication: ASTHMA
     Route: 048
     Dates: start: 20050111, end: 20050210

REACTIONS (1)
  - CARDIAC FAILURE [None]
